FAERS Safety Report 16140199 (Version 1)
Quarter: 2019Q1

REPORT INFORMATION
  Report Type: Spontaneous
  Country: US (occurrence: US)
  Receive Date: 20190226
  Receipt Date: 20190226
  Transmission Date: 20190418
  Serious: Yes (Hospitalization)
  Sender: FDA-Public Use
  Company Number: None

PATIENT
  Age: 72 Year
  Sex: Male
  Weight: 93.44 kg

DRUGS (15)
  1. SESTAMBI [Suspect]
     Active Substance: TETRAKIS(2-METHOXYISOBUTYLISOCYANIDE)COPPER(I) TETRAFLUOROBORATE
     Indication: DRUG THERAPY
     Dates: start: 20190213, end: 20190213
  2. ATORVASTATIN [Concomitant]
     Active Substance: ATORVASTATIN
  3. COENZYME Q10 [Concomitant]
     Active Substance: UBIDECARENONE
  4. FISH OIL [Concomitant]
     Active Substance: FISH OIL
  5. METOPROLOL SUCCINATE ER [Concomitant]
     Active Substance: METOPROLOL SUCCINATE
  6. MULTI-PROBIOTIC CAPSULES [Concomitant]
  7. GLIMEPERIDE [Concomitant]
     Active Substance: GLIMEPIRIDE
  8. PLAVIX [Concomitant]
     Active Substance: CLOPIDOGREL BISULFATE
  9. CYMBALTA [Concomitant]
     Active Substance: DULOXETINE HYDROCHLORIDE
  10. VITAMINS C [Concomitant]
  11. PSYLLIUM HUSK. [Concomitant]
     Active Substance: PSYLLIUM HUSK
  12. VITAMINS 1 [Concomitant]
  13. RAMIPRIL. [Concomitant]
     Active Substance: RAMIPRIL
  14. ALLOPURINOL. [Concomitant]
     Active Substance: ALLOPURINOL
  15. OMEGA 3 [Concomitant]
     Active Substance: OMEGA-3 FATTY ACIDS

REACTIONS (3)
  - Heart rate increased [None]
  - Body temperature increased [None]
  - Tremor [None]

NARRATIVE: CASE EVENT DATE: 20190213
